FAERS Safety Report 7960195-X (Version None)
Quarter: 2011Q4

REPORT INFORMATION
  Report Type: 
  Country: None (occurrence: None)
  Receive Date: 20111206
  Receipt Date: 20111202
  Transmission Date: 20120403
  Serious: Yes (Death, Hospitalization, Other)
  Sender: FDA-Public Use
  Company Number: PHHY2011BR59448

PATIENT
  Sex: Male

DRUGS (1)
  1. DIOVAN [Suspect]
     Indication: HYPERTENSION
     Dosage: 1 DF, (320MG) DAILY
     Route: 048

REACTIONS (5)
  - RENAL FAILURE [None]
  - ILEUS PARALYTIC [None]
  - IMMUNODEFICIENCY [None]
  - BONE NEOPLASM MALIGNANT [None]
  - MULTIPLE MYELOMA [None]
